FAERS Safety Report 26191905 (Version 1)
Quarter: 2025Q4

REPORT INFORMATION
  Report Type: Spontaneous
  Country: US (occurrence: US)
  Receive Date: 20251223
  Receipt Date: 20251223
  Transmission Date: 20260117
  Serious: Yes (Other)
  Sender: TG THERAPEUTICS
  Company Number: US-TG THERAPEUTICS INC.-TGT006812

PATIENT
  Age: 63 Year

DRUGS (5)
  1. BRIUMVI [Suspect]
     Active Substance: UBLITUXIMAB-XIIY
     Indication: Multiple sclerosis
     Dosage: UNK
  2. BRIUMVI [Suspect]
     Active Substance: UBLITUXIMAB-XIIY
     Dosage: UNK
  3. BRIUMVI [Suspect]
     Active Substance: UBLITUXIMAB-XIIY
     Dosage: UNK
  4. BRIUMVI [Suspect]
     Active Substance: UBLITUXIMAB-XIIY
     Dosage: UNK
  5. HYDROXYCHLOROQUINE DIPHOSPHATE [Concomitant]
     Active Substance: HYDROXYCHLOROQUINE DIPHOSPHATE
     Indication: Sjogren^s syndrome
     Dosage: UNK

REACTIONS (5)
  - Pneumonia [Unknown]
  - Streptococcus test positive [Unknown]
  - Enterovirus test positive [Unknown]
  - Cough [Unknown]
  - Wheezing [Unknown]
